FAERS Safety Report 24823117 (Version 2)
Quarter: 2025Q1

REPORT INFORMATION
  Report Type: Report from Study
  Country: US (occurrence: US)
  Receive Date: 20250109
  Receipt Date: 20250113
  Transmission Date: 20250409
  Serious: Yes (Other)
  Sender: ABBVIE
  Company Number: US-ABBVIE-5662183

PATIENT
  Age: 66 Year
  Sex: Female
  Weight: 101 kg

DRUGS (3)
  1. HUMIRA [Suspect]
     Active Substance: ADALIMUMAB
     Indication: Rheumatoid arthritis
     Route: 058
     Dates: start: 20230919
  2. HUMIRA [Suspect]
     Active Substance: ADALIMUMAB
     Dosage: FORM STRENGTH: 40 MILLIGRAM?LAST ADMINISTRATION 2023
     Route: 058
     Dates: start: 20230809, end: 202404
  3. HUMIRA [Suspect]
     Active Substance: ADALIMUMAB
     Dosage: FORM STRENGTH: 40 MILLIGRAM, FIRST ADMIN DATE: 2023
     Route: 058
     Dates: end: 202404

REACTIONS (7)
  - Cataract [Recovered/Resolved]
  - Meniscus injury [Recovering/Resolving]
  - Osteoarthritis [Not Recovered/Not Resolved]
  - Muscle tightness [Not Recovered/Not Resolved]
  - Urinary tract infection [Recovered/Resolved]
  - Blood cholesterol [Unknown]
  - Hypertension [Unknown]

NARRATIVE: CASE EVENT DATE: 20230101
